FAERS Safety Report 6491959-X (Version None)
Quarter: 2009Q4

REPORT INFORMATION
  Report Type: 
  Country: None (occurrence: None)
  Receive Date: 20091208
  Receipt Date: 20091130
  Transmission Date: 20100525
  Serious: Yes (Other)
  Sender: FDA-Public Use
  Company Number: SPV1-2009-02405

PATIENT
  Age: 40 Year
  Sex: Male

DRUGS (4)
  1. FOSRENOL [Suspect]
     Indication: HYPERPHOSPHATAEMIA
     Dates: start: 20091113
  2. LASILIX /00032601/ (FUROSEMIDE) [Concomitant]
  3. FERROUS /00023501/ (IRON) [Concomitant]
  4. BICARBONATE (SODIUM BICARBONATE) [Concomitant]

REACTIONS (1)
  - PANCREATITIS ACUTE [None]
